FAERS Safety Report 4445796-8 (Version None)
Quarter: 2004Q3

REPORT INFORMATION
  Report Type: 
  Country: None (occurrence: None)
  Receive Date: 20040903
  Receipt Date: 20040820
  Transmission Date: 20050211
  Serious: Yes (Hospitalization)
  Sender: FDA-Public Use
  Company Number: 2004-BP-04718NB

PATIENT
  Age: 80 Year
  Sex: Male

DRUGS (8)
  1. MICARDIS [Suspect]
     Indication: HYPERTENSION
     Dosage: 20 MG (20 MG) PO
     Route: 048
     Dates: start: 20040510, end: 20040614
  2. TORASEMIDE (TORASEMIDE) (TA) [Concomitant]
  3. LANIRAPID (METILDIGOXIN) (TA) [Concomitant]
  4. ACARDI (PIMOBENDAN) (KA) [Concomitant]
  5. BASEN (VOGLIBOSE) (TA) [Concomitant]
  6. GLIMICRON (GLICLAZIDE) (TA) [Concomitant]
  7. ZANTAC [Concomitant]
  8. FUROSEMIDE (FUROSEMIDE) (TA) [Concomitant]

REACTIONS (4)
  - LIVER DISORDER [None]
  - NAUSEA [None]
  - STOMACH DISCOMFORT [None]
  - VOMITING [None]
